FAERS Safety Report 12110417 (Version 2)
Quarter: 2016Q2

REPORT INFORMATION
  Report Type: Spontaneous
  Country: GB (occurrence: GB)
  Receive Date: 20160224
  Receipt Date: 20160518
  Transmission Date: 20160815
  Serious: Yes (Death, Other)
  Sender: FDA-Public Use
  Company Number: GB-GILEAD-2016-0198881

PATIENT
  Age: 39 Year
  Sex: Male
  Weight: 95 kg

DRUGS (9)
  1. BUPRENORPHINE. [Concomitant]
     Active Substance: BUPRENORPHINE
  2. SPIRONOLACTONE. [Concomitant]
     Active Substance: SPIRONOLACTONE
  3. RIBAVIRIN. [Concomitant]
     Active Substance: RIBAVIRIN
  4. NEBIVOLOL. [Concomitant]
     Active Substance: NEBIVOLOL
  5. HARVONI [Suspect]
     Active Substance: LEDIPASVIR\SOFOSBUVIR
     Indication: HEPATITIS C
     Dosage: LEDIAPSVIR 90MGSOFOSBUVIR 400MG
     Route: 048
     Dates: start: 20151016, end: 20160108
  6. SUMATRIPTAN SUCCINATE. [Concomitant]
     Active Substance: SUMATRIPTAN SUCCINATE
  7. BUMETANIDE. [Concomitant]
     Active Substance: BUMETANIDE
  8. CITALOPRAM [Concomitant]
     Active Substance: CITALOPRAM HYDROBROMIDE
  9. GABAPENTIN. [Concomitant]
     Active Substance: GABAPENTIN

REACTIONS (1)
  - Cardiac death [Fatal]

NARRATIVE: CASE EVENT DATE: 20160122
